FAERS Safety Report 16842194 (Version 2)
Quarter: 2019Q4

REPORT INFORMATION
  Report Type: Spontaneous
  Country: US (occurrence: US)
  Receive Date: 20190923
  Receipt Date: 20191119
  Transmission Date: 20200122
  Serious: No
  Sender: FDA-Public Use
  Company Number: US-JNJFOC-20190914722

PATIENT
  Sex: Female
  Weight: 61.29 kg

DRUGS (1)
  1. ROGAINE [Suspect]
     Active Substance: MINOXIDIL
     Indication: ALOPECIA
     Dosage: AS WHAT INSTRUCTIONS SAYS TWICE
     Route: 061

REACTIONS (1)
  - Skin disorder [Recovered/Resolved]
